FAERS Safety Report 11384382 (Version 1)
Quarter: 2015Q3

REPORT INFORMATION
  Report Type: Spontaneous
  Country: US (occurrence: US)
  Receive Date: 20150811
  Receipt Date: 20150811
  Transmission Date: 20151125
  Serious: No
  Sender: FDA-Public Use
  Company Number: US-ELI_LILLY_AND_COMPANY-US201011003210

PATIENT
  Sex: Male
  Weight: 71.66 kg

DRUGS (1)
  1. CIALIS [Suspect]
     Active Substance: TADALAFIL
     Indication: PROSTATECTOMY
     Dosage: 5 MG, DAILY (1/D)

REACTIONS (2)
  - Dizziness [Recovered/Resolved]
  - Off label use [Unknown]
